FAERS Safety Report 19591551 (Version 1)
Quarter: 2021Q3

REPORT INFORMATION
  Report Type: Report from Study
  Country: BR (occurrence: BR)
  Receive Date: 20210721
  Receipt Date: 20210721
  Transmission Date: 20211014
  Serious: Yes (Other)
  Sender: FDA-Public Use
  Company Number: NVSC2021BR160074

PATIENT
  Sex: Male

DRUGS (1)
  1. SEEBRI [Suspect]
     Active Substance: GLYCOPYRROLATE
     Indication: PRODUCT USED FOR UNKNOWN INDICATION
     Dosage: 50 UG (BY MORNING AND BY NIGHT) (2 MONTHS AGO)
     Route: 065

REACTIONS (6)
  - Deafness [Unknown]
  - Spinal fracture [Unknown]
  - Hypoacusis [Unknown]
  - Fatigue [Unknown]
  - Fall [Unknown]
  - Cerebrovascular accident [Unknown]
